FAERS Safety Report 5325768-1 (Version None)
Quarter: 2007Q2

REPORT INFORMATION
  Report Type: 
  Country: None (occurrence: None)
  Receive Date: 20070509
  Receipt Date: 20070503
  Transmission Date: 20071010
  Serious: Yes (Death)
  Sender: FDA-Public Use
  Company Number: 220061K07USA

PATIENT
  Age: 3 Year
  Sex: Female
  Weight: 14.2 kg

DRUGS (5)
  1. SAIZEN [Suspect]
     Indication: BLOOD GROWTH HORMONE DECREASED
     Dosage: 0.5 MG, 1 IN 1 DAYS, SUBCUTANEOUS
     Route: 058
  2. SYNTHROID [Concomitant]
  3. DDAVP [Concomitant]
  4. CORTEF (HYDROCORTISONE /00028601/) [Concomitant]
  5. BICITRA (SHOHL'S SOLUTION) [Concomitant]

REACTIONS (1)
  - DEATH [None]
